FAERS Safety Report 19672625 (Version 1)
Quarter: 2021Q3

REPORT INFORMATION
  Report Type: Spontaneous
  Country: JP (occurrence: JP)
  Receive Date: 20210808
  Receipt Date: 20210808
  Transmission Date: 20211014
  Serious: Yes (Hospitalization, Other)
  Sender: FDA-Public Use
  Company Number: JP-GILEAD-2021-0543031

PATIENT
  Age: 5 Decade
  Sex: Female
  Weight: 60.4 kg

DRUGS (1)
  1. VEMLIDY [Suspect]
     Active Substance: TENOFOVIR ALAFENAMIDE FUMARATE
     Indication: VIRAL HEPATITIS CARRIER
     Dosage: UNK
     Route: 048

REACTIONS (6)
  - Pulmonary embolism [Recovered/Resolved]
  - Deep vein thrombosis [Recovering/Resolving]
  - Breast cancer stage II [Recovering/Resolving]
  - Ovarian cancer stage IV [Unknown]
  - Anaemia [Unknown]
  - Metastases to lymph nodes [Recovering/Resolving]

NARRATIVE: CASE EVENT DATE: 201912
